FAERS Safety Report 18340229 (Version 1)
Quarter: 2020Q4

REPORT INFORMATION
  Report Type: Spontaneous
  Country: US (occurrence: US)
  Receive Date: 20201002
  Receipt Date: 20201002
  Transmission Date: 20210113
  Serious: No
  Sender: FDA-Public Use
  Company Number: US-CELGENEUS-USA-20200907818

PATIENT
  Sex: Female

DRUGS (5)
  1. REVLIMID [Suspect]
     Active Substance: LENALIDOMIDE
     Dosage: 10 MILLIGRAM
     Route: 048
     Dates: start: 201709
  2. REVLIMID [Suspect]
     Active Substance: LENALIDOMIDE
     Indication: PLASMA CELL MYELOMA
     Dosage: 25 MILLIGRAM
     Route: 048
     Dates: start: 200711
  3. REVLIMID [Suspect]
     Active Substance: LENALIDOMIDE
     Dosage: 10 MILLIGRAM
     Route: 048
     Dates: start: 200903
  4. DARZALEX FASTPRO [Concomitant]
     Indication: PLASMA CELL MYELOMA
     Route: 065
     Dates: start: 202008
  5. DVD [Concomitant]
     Indication: PLASMA CELL MYELOMA
     Route: 065
     Dates: start: 202008

REACTIONS (1)
  - Plasma cell myeloma recurrent [Recovering/Resolving]

NARRATIVE: CASE EVENT DATE: 2020
